FAERS Safety Report 8420463 (Version 5)
Quarter: 2012Q4

REPORT INFORMATION
  Report Type: 
  Country: US (occurrence: US)
  Receive Date: 20120222
  Receipt Date: 20120912
  Transmission Date: 20130627
  Serious: Yes (Hospitalization)
  Sender: FDA-Public Use
  Company Number: US-ACTELION-A-US2012-61081

PATIENT
  Age: 55 Year
  Sex: Female

DRUGS (4)
  1. TRACLEER [Suspect]
     Indication: PULMONARY ARTERIAL HYPERTENSION
     Dosage: UNK
     Route: 048
     Dates: start: 200906
  2. TRACLEER [Suspect]
     Dosage: 62.5 mg, bid
     Route: 048
     Dates: start: 20020412
  3. CALCIUM CHANNEL BLOCKERS [Concomitant]
  4. REVATIO [Concomitant]

REACTIONS (6)
  - Pneumonia [Unknown]
  - Oxygen saturation decreased [Unknown]
  - Liver function test abnormal [Unknown]
  - Tracheostomy [Unknown]
  - Condition aggravated [Unknown]
  - Respiratory distress [Unknown]
